FAERS Safety Report 5948287-8 (Version None)
Quarter: 2008Q4

REPORT INFORMATION
  Report Type: 
  Country: None (occurrence: None)
  Receive Date: 20081021
  Receipt Date: 20080422
  Transmission Date: 20090506
  Serious: Yes (Other)
  Sender: FDA-Public Use
  Company Number: US-WYE-H03795208

PATIENT
  Age: 51 Year
  Sex: Female

DRUGS (3)
  1. PREMARIN [Suspect]
  2. ESTRADIOL [Suspect]
  3. PREMPRO [Suspect]

REACTIONS (2)
  - PULMONARY EMBOLISM [None]
  - THROMBOSIS [None]
